FAERS Safety Report 5766489-0 (Version None)
Quarter: 2008Q2

REPORT INFORMATION
  Report Type: 
  Country: None (occurrence: None)
  Receive Date: 20080606
  Receipt Date: 20080528
  Transmission Date: 20081010
  Serious: Yes (Other)
  Sender: FDA-Public Use
  Company Number: 2008SP010167

PATIENT
  Age: 17 Year
  Sex: Male

DRUGS (2)
  1. DESLORATADINE [Suspect]
     Indication: CONJUNCTIVITIS ALLERGIC
     Dosage: QD; PO
     Route: 048
     Dates: start: 20070801, end: 20071201
  2. DESLORATADINE [Suspect]
     Indication: CONJUNCTIVITIS ALLERGIC
     Dosage: QD; PO
     Route: 048
     Dates: start: 20080501, end: 20080501

REACTIONS (1)
  - SCOTOMA [None]
